FAERS Safety Report 9916873 (Version 1)
Quarter: 2014Q1

REPORT INFORMATION
  Report Type: Spontaneous
  Country: US (occurrence: US)
  Receive Date: 20140221
  Receipt Date: 20140221
  Transmission Date: 20141002
  Serious: No
  Sender: FDA-Public Use
  Company Number: US-MYLANLABS-2013S1023543

PATIENT
  Age: 85 Year
  Sex: Male

DRUGS (4)
  1. LAMOTRIGINE TABLETS [Suspect]
     Indication: CONVULSION
     Route: 048
     Dates: start: 2013
  2. LEVOTHYROXINE [Concomitant]
     Dosage: TAKEN FOR YEARS
  3. LOVASTATIN [Concomitant]
     Dosage: TAKEN FOR YEARS
  4. ASA [Concomitant]
     Dosage: TAKEN FOR YEARS

REACTIONS (2)
  - Urine flow decreased [Not Recovered/Not Resolved]
  - Urinary retention [Not Recovered/Not Resolved]
